FAERS Safety Report 17971779 (Version 1)
Quarter: 2020Q3

REPORT INFORMATION
  Report Type: Spontaneous
  Country: US (occurrence: US)
  Receive Date: 20200701
  Receipt Date: 20200701
  Transmission Date: 20201103
  Serious: Yes (Hospitalization, Other)
  Sender: FDA-Public Use
  Company Number: NVSC2020US183691

PATIENT
  Age: 23 Month
  Sex: Male

DRUGS (2)
  1. AMOXICILLIN. [Suspect]
     Active Substance: AMOXICILLIN
     Indication: OTITIS MEDIA ACUTE
  2. AMOXICILLIN. [Suspect]
     Active Substance: AMOXICILLIN
     Indication: GASTROENTERITIS VIRAL
     Dosage: 90 MG/KG, QD
     Route: 065

REACTIONS (15)
  - Vomiting [Unknown]
  - Acute kidney injury [Unknown]
  - Product use in unapproved indication [Unknown]
  - Oliguria [Unknown]
  - Urine output decreased [Recovering/Resolving]
  - Haematuria [Unknown]
  - Anuria [Unknown]
  - Fluid intake reduced [Unknown]
  - Metabolic acidosis [Unknown]
  - Ureteric obstruction [Unknown]
  - Weight increased [Recovered/Resolved]
  - Hydronephrosis [Unknown]
  - Crystal nephropathy [Unknown]
  - Hypertension [Recovered/Resolved]
  - Proteinuria [Unknown]
